FAERS Safety Report 20951956 (Version 1)
Quarter: 2022Q2

REPORT INFORMATION
  Report Type: Other
  Country: US (occurrence: None)
  Receive Date: 20220613
  Receipt Date: 20220613
  Transmission Date: 20220721
  Serious: Yes (Other)
  Sender: FDA-Public Use
  Company Number: US-ROCHE-3114335

PATIENT
  Sex: Female
  Weight: 190.68 kg

DRUGS (7)
  1. RITUXAN [Suspect]
     Active Substance: RITUXIMAB
     Indication: Neuromyelitis optica spectrum disorder
     Dosage: 1000 UNIT NOT REPORTED
     Route: 042
     Dates: start: 201406
  2. RITUXAN [Suspect]
     Active Substance: RITUXIMAB
     Indication: Multiple sclerosis
  3. CELLCEPT [Suspect]
     Active Substance: MYCOPHENOLATE MOFETIL
     Indication: Neuromyelitis optica spectrum disorder
     Route: 065
  4. DEXAMETHASONE [Concomitant]
     Active Substance: DEXAMETHASONE
  5. LOTEPREDNOL ETABONATE [Concomitant]
     Active Substance: LOTEPREDNOL ETABONATE
  6. METOPROLOL TARTRATE [Concomitant]
     Active Substance: METOPROLOL TARTRATE
  7. TRAMADOL [Concomitant]
     Active Substance: TRAMADOL

REACTIONS (17)
  - COVID-19 [Not Recovered/Not Resolved]
  - Off label use [Unknown]
  - Blindness [Unknown]
  - Eye pain [Unknown]
  - Hypoaesthesia [Unknown]
  - Osteoporosis [Unknown]
  - Fall [Unknown]
  - Neuralgia [Unknown]
  - Fatigue [Unknown]
  - Depression [Unknown]
  - Photophobia [Unknown]
  - Paraesthesia [Unknown]
  - Muscle spasms [Unknown]
  - Muscular weakness [Unknown]
  - Musculoskeletal stiffness [Unknown]
  - Headache [Unknown]
  - Sensory loss [Unknown]
